FAERS Safety Report 7307960-X (Version None)
Quarter: 2011Q1

REPORT INFORMATION
  Report Type: 
  Country: None (occurrence: None)
  Receive Date: 20110223
  Receipt Date: 20110214
  Transmission Date: 20110831
  Serious: Yes (Hospitalization, Disabling)
  Sender: FDA-Public Use
  Company Number: JP-BAYER-2011-010603

PATIENT
  Sex: Male
  Weight: 65 kg

DRUGS (3)
  1. NEXAVAR [Suspect]
     Dosage: DAILY DOSE 400 MG
     Dates: start: 20091117, end: 20100318
  2. NEXAVAR [Suspect]
     Indication: RENAL CELL CARCINOMA
     Dosage: DAILY DOSE 800 MG
     Route: 048
     Dates: start: 20091109, end: 20091116
  3. NEXAVAR [Suspect]
     Dosage: DAILY DOSE 400 MG
     Dates: start: 20100614, end: 20101213

REACTIONS (1)
  - NEPHROTIC SYNDROME [None]
